FAERS Safety Report 10706184 (Version 2)
Quarter: 2016Q1

REPORT INFORMATION
  Report Type: Spontaneous
  Country: DK (occurrence: DK)
  Receive Date: 20150113
  Receipt Date: 20160120
  Transmission Date: 20160525
  Serious: Yes (Life-Threatening, Hospitalization)
  Sender: FDA-Public Use
  Company Number: PHHY2015DK000934

PATIENT
  Age: 81 Year
  Sex: Male
  Weight: 88 kg

DRUGS (14)
  1. FOLINSYRE [Concomitant]
     Indication: FOLATE DEFICIENCY
     Dosage: 5 MG, QW
     Route: 048
  2. PINEX [Concomitant]
     Active Substance: ACETAMINOPHEN
     Dosage: STYRKE: 500 MG
     Route: 048
  3. JERN C [Concomitant]
     Indication: IRON DEFICIENCY ANAEMIA
     Dosage: 100 MG, QD
     Route: 048
  4. KALEORID [Concomitant]
     Active Substance: POTASSIUM CHLORIDE
     Dosage: STYRKE: 750 MG
     Route: 048
  5. PINEX [Concomitant]
     Active Substance: ACETAMINOPHEN
     Indication: PAIN
     Dosage: 1 G, BID
     Route: 048
  6. VENTOLINE [Concomitant]
     Active Substance: ALBUTEROL
     Indication: ASTHMA
     Dosage: 0.2 MG, (1 SUCTION AS NEEDED)
     Route: 055
  7. CIMZIA [Suspect]
     Active Substance: CERTOLIZUMAB PEGOL
     Indication: RHEUMATOID ARTHRITIS
     Dosage: 200 MG, BIW
     Route: 058
     Dates: end: 20140929
  8. BURANA [Concomitant]
     Active Substance: IBUPROFEN
     Dosage: STYRKE: 400 MG
     Route: 048
  9. LANSOPRAZOL [Concomitant]
     Active Substance: LANSOPRAZOLE
     Indication: REFLUX GASTRITIS
     Route: 065
  10. BURANA [Concomitant]
     Active Substance: IBUPROFEN
     Indication: PAIN
     Dosage: 400 MG, BID
     Route: 048
  11. KALEORID [Concomitant]
     Active Substance: POTASSIUM CHLORIDE
     Indication: HYPOKALAEMIA
     Dosage: 750 MG, BID
     Route: 048
  12. VENTOLINE [Concomitant]
     Active Substance: ALBUTEROL
     Dosage: DOSIS: 1 SUGE EFTER BEHOV, STYRKE: 0,2 MG I DISKOS
     Route: 055
  13. CIMZIA [Suspect]
     Active Substance: CERTOLIZUMAB PEGOL
     Dosage: STYRKE: 200 MG
     Route: 058
     Dates: end: 20140929
  14. METHOTREXATE (METHOTREXATE SODIUM) [Suspect]
     Active Substance: METHOTREXATE SODIUM
     Indication: RHEUMATOID ARTHRITIS
     Dosage: 10 DF (10 TABLETS PER WEEK)
     Route: 048
     Dates: end: 20140929

REACTIONS (7)
  - Cough [Not Recovered/Not Resolved]
  - Pyrexia [Recovered/Resolved]
  - Interstitial lung disease [Recovering/Resolving]
  - Acute respiratory distress syndrome [Unknown]
  - Hypersensitivity [Recovered/Resolved]
  - Cardiac failure [Unknown]
  - Atrial fibrillation [Not Recovered/Not Resolved]

NARRATIVE: CASE EVENT DATE: 2014
